FAERS Safety Report 7476395-1 (Version None)
Quarter: 2011Q2

REPORT INFORMATION
  Report Type: 
  Country: None (occurrence: None)
  Receive Date: 20110512
  Receipt Date: 20110509
  Transmission Date: 20111010
  Serious: Yes (Hospitalization)
  Sender: FDA-Public Use
  Company Number: B0718617A

PATIENT
  Sex: Male

DRUGS (1)
  1. LANOXIN [Suspect]
     Indication: ARRHYTHMIA
     Dosage: .125MG PER DAY
     Dates: start: 20101223, end: 20110125

REACTIONS (2)
  - VOMITING [None]
  - BRADYCARDIA [None]
